FAERS Safety Report 6468869-7 (Version None)
Quarter: 2009Q4

REPORT INFORMATION
  Report Type: 
  Country: None (occurrence: None)
  Receive Date: 20091203
  Receipt Date: 20090130
  Transmission Date: 20100525
  Serious: Yes (Other)
  Sender: FDA-Public Use
  Company Number: US-ELI_LILLY_AND_COMPANY-US200606002036

PATIENT
  Sex: Female

DRUGS (8)
  1. EVISTA [Suspect]
     Indication: OSTEOPOROSIS
     Dosage: UNK, UNKNOWN
     Route: 048
     Dates: start: 20010101, end: 20060401
  2. EVISTA [Suspect]
     Dosage: 60 MG, DAILY (1/D)
     Route: 065
     Dates: start: 20080101
  3. DIOVAN HCT [Concomitant]
     Indication: BLOOD PRESSURE INCREASED
     Dosage: 40 MG, UNKNOWN
     Route: 065
  4. DIOVAN HCT [Concomitant]
     Dosage: 80 MG, UNKNOWN
     Route: 065
  5. DIOVAN HCT [Concomitant]
     Dosage: 160 MG, UNKNOWN
     Route: 065
  6. FORTEO [Suspect]
     Indication: OSTEOPOROSIS
     Dosage: UNK, UNK
     Dates: start: 20060501, end: 20070501
  7. VITAMINS [Concomitant]
     Dosage: UNK, UNKNOWN
     Route: 065
  8. PRILOSEC [Concomitant]
     Dosage: UNK, UNKNOWN
     Route: 065

REACTIONS (3)
  - CONDITION AGGRAVATED [None]
  - MACULAR DEGENERATION [None]
  - MUSCLE SPASMS [None]
